FAERS Safety Report 17368143 (Version 4)
Quarter: 2020Q1

REPORT INFORMATION
  Report Type: Spontaneous
  Country: PT (occurrence: PT)
  Receive Date: 20200204
  Receipt Date: 20200221
  Transmission Date: 20200409
  Serious: Yes (Hospitalization, Other)
  Sender: FDA-Public Use
  Company Number: NVSC2019PT037172

PATIENT
  Age: 19 Year
  Sex: Male

DRUGS (5)
  1. CHLORPROMAZINE HYDROCHLORIDE. [Suspect]
     Active Substance: CHLORPROMAZINE HYDROCHLORIDE
     Dosage: UNK
     Route: 065
     Dates: start: 201906
  2. IBUPROFEN. [Suspect]
     Active Substance: IBUPROFEN
     Dosage: UNK
     Route: 065
  3. CHLORPROMAZINE HYDROCHLORIDE. [Suspect]
     Active Substance: CHLORPROMAZINE HYDROCHLORIDE
     Dosage: UNK
     Route: 065
  4. IBUPROFEN. [Suspect]
     Active Substance: IBUPROFEN
     Indication: COUGH
     Dosage: UNK
     Route: 065
  5. CHLORPROMAZINE HYDROCHLORIDE. [Suspect]
     Active Substance: CHLORPROMAZINE HYDROCHLORIDE
     Indication: INSOMNIA
     Dosage: UNK
     Route: 065
     Dates: start: 20190601

REACTIONS (5)
  - Bilirubin conjugated increased [Unknown]
  - Liver injury [Unknown]
  - Blood bilirubin increased [Recovering/Resolving]
  - Intentional product misuse [Unknown]
  - Product use in unapproved indication [Unknown]
